FAERS Safety Report 20434937 (Version 4)
Quarter: 2022Q3

REPORT INFORMATION
  Report Type: Spontaneous
  Country: JP (occurrence: JP)
  Receive Date: 20220206
  Receipt Date: 20220812
  Transmission Date: 20221027
  Serious: Yes (Hospitalization)
  Sender: FDA-Public Use
  Company Number: JP-NOVARTISPH-NVSJ2022JP002423

PATIENT
  Age: 72 Year
  Sex: Male

DRUGS (1)
  1. KESIMPTA [Suspect]
     Active Substance: OFATUMUMAB
     Indication: Multiple sclerosis
     Dosage: 20 MG
     Route: 058
     Dates: start: 20220104, end: 20220131

REACTIONS (8)
  - Multiple sclerosis relapse [Recovered/Resolved]
  - Dyslalia [Unknown]
  - Dysphagia [Unknown]
  - Mental impairment [Unknown]
  - Speech disorder [Unknown]
  - Somnolence [Unknown]
  - Lymphocyte count decreased [Recovered/Resolved]
  - White blood cell count decreased [Recovered/Resolved]

NARRATIVE: CASE EVENT DATE: 20220131
